FAERS Safety Report 4381616-8 (Version None)
Quarter: 2004Q2

REPORT INFORMATION
  Report Type: 
  Country: None (occurrence: None)
  Receive Date: 20040621
  Receipt Date: 20040419
  Transmission Date: 20050107
  Serious: Yes (Hospitalization)
  Sender: FDA-Public Use
  Company Number: JP-ROCHE-365186

PATIENT
  Age: 73 Year
  Sex: Male
  Weight: 44.6 kg

DRUGS (4)
  1. PEGASYS [Suspect]
     Indication: HEPATITIS C
     Route: 058
     Dates: start: 20040312, end: 20040409
  2. STRONGER NEO-MINOPHAGEN C [Concomitant]
     Indication: HEPATITIS C
     Route: 048
     Dates: start: 20021227, end: 20040414
  3. UNKNOWN DRUG [Concomitant]
     Indication: PYREXIA
     Dosage: DRUG NAME REPORTED AS ROXOPROFEN.
     Route: 048
     Dates: start: 20040312, end: 20040415
  4. MUCOSTA [Concomitant]
     Route: 048
     Dates: start: 20040312, end: 20040415

REACTIONS (5)
  - NEUTROPENIA [None]
  - PYREXIA [None]
  - THIRST [None]
  - TREMOR [None]
  - WHITE BLOOD CELL COUNT DECREASED [None]
